FAERS Safety Report 16752712 (Version 1)
Quarter: 2019Q3

REPORT INFORMATION
  Report Type: Spontaneous
  Country: US (occurrence: US)
  Receive Date: 20190828
  Receipt Date: 20190828
  Transmission Date: 20191005
  Serious: No
  Sender: FDA-Public Use
  Company Number: US-JNJFOC-20190821852

PATIENT
  Sex: Male

DRUGS (1)
  1. SUDAFED 12 HOUR [Suspect]
     Active Substance: PSEUDOEPHEDRINE HYDROCHLORIDE
     Indication: EAR DISORDER
     Dosage: 1 TABLET ONCE A DAY
     Route: 048

REACTIONS (4)
  - Insomnia [Unknown]
  - Therapeutic response unexpected [Unknown]
  - Dizziness [Unknown]
  - Product use in unapproved indication [Unknown]
